FAERS Safety Report 10204738 (Version 1)
Quarter: 2014Q2

REPORT INFORMATION
  Report Type: Spontaneous
  Country: US (occurrence: None)
  Receive Date: 20140527
  Receipt Date: 20140527
  Transmission Date: 20141212
  Serious: Yes (Life-Threatening, Disabling, Other)
  Sender: FDA-Public Use
  Company Number: None

PATIENT
  Age: 44 Year
  Sex: Female
  Weight: 52.16 kg

DRUGS (1)
  1. RECLAST NOVARTIS [Suspect]
     Indication: OSTEOPOROSIS
     Dosage: 1 PER YEAR ?INTO A VEIN?

REACTIONS (5)
  - Tooth fracture [None]
  - Osteomyelitis [None]
  - Spinal fracture [None]
  - Pain [None]
  - Drug ineffective [None]
